FAERS Safety Report 9624413 (Version 1)
Quarter: 2013Q4

REPORT INFORMATION
  Report Type: Spontaneous
  Country: IT (occurrence: IT)
  Receive Date: 20131015
  Receipt Date: 20131015
  Transmission Date: 20140711
  Serious: Yes (Other)
  Sender: FDA-Public Use
  Company Number: IT-GLAXOSMITHKLINE-B0929920A

PATIENT
  Age: 72 Year
  Sex: Male

DRUGS (6)
  1. SERETIDE DISKUS [Suspect]
     Indication: ASTHMA
     Dosage: 2Z PER DAY
     Route: 055
     Dates: start: 20050101, end: 20131001
  2. METFORMIN [Concomitant]
  3. SIMVASTATIN [Concomitant]
  4. AMLODIPINE [Concomitant]
  5. TRIATEC [Concomitant]
  6. CARDIOASPIRIN [Concomitant]

REACTIONS (2)
  - Oesophageal candidiasis [Recovering/Resolving]
  - Oral candidiasis [Recovering/Resolving]
